FAERS Safety Report 12806190 (Version 1)
Quarter: 2016Q4

REPORT INFORMATION
  Report Type: Spontaneous
  Country: US (occurrence: US)
  Receive Date: 20161004
  Receipt Date: 20161004
  Transmission Date: 20170207
  Serious: Yes (Other)
  Sender: FDA-Public Use
  Company Number: None

PATIENT
  Age: 63 Year
  Sex: Male

DRUGS (1)
  1. RILUZOLE 50MG APOTEX [Suspect]
     Active Substance: RILUZOLE
     Indication: AMYOTROPHIC LATERAL SCLEROSIS
     Route: 048
     Dates: start: 20160721, end: 20160901

REACTIONS (1)
  - Diarrhoea [None]

NARRATIVE: CASE EVENT DATE: 20160825
